FAERS Safety Report 7931081-6 (Version None)
Quarter: 2011Q4

REPORT INFORMATION
  Report Type: 
  Country: None (occurrence: None)
  Receive Date: 20111121
  Receipt Date: 20111108
  Transmission Date: 20120403
  Serious: No
  Sender: FDA-Public Use
  Company Number: US-TYCO HEALTHCARE/MALLINCKRODT-T201102259

PATIENT
  Age: 51 Year
  Sex: Female
  Weight: 94.331 kg

DRUGS (7)
  1. ADDERALL 5 [Concomitant]
     Indication: ATTENTION DEFICIT/HYPERACTIVITY DISORDER
     Dosage: 30 MG, TID
     Dates: start: 20080101
  2. EXALGO [Suspect]
     Indication: DIABETIC NEUROPATHY
     Dosage: 32 MG, QD
     Route: 048
     Dates: start: 20110416, end: 20110422
  3. METHADONE HCL [Concomitant]
     Indication: DIABETIC NEUROPATHY
     Dosage: 60 MG, QD
     Dates: start: 20100407, end: 20110415
  4. TIZANIDINE HCL [Concomitant]
     Indication: MUSCLE RELAXANT THERAPY
     Dosage: 4 MG, TID
     Dates: start: 20100101
  5. HYDROMORPHONE HCL [Concomitant]
     Indication: DIABETIC NEUROPATHY
     Dosage: 4 MG, QID
     Dates: start: 20100101, end: 20110415
  6. KETAMINE HCL [Concomitant]
     Indication: MUSCLE RELAXANT THERAPY
     Dosage: 100 MG, QID
     Dates: start: 20101103
  7. GABAPENTIN [Concomitant]
     Indication: NEURALGIA
     Dosage: 300 MG, QD
     Dates: start: 20100101

REACTIONS (1)
  - PNEUMONIA [None]
